FAERS Safety Report 6462202-2 (Version None)
Quarter: 2009Q4

REPORT INFORMATION
  Report Type: 
  Country: None (occurrence: None)
  Receive Date: 20091130
  Receipt Date: 20091123
  Transmission Date: 20100525
  Serious: Yes (Other)
  Sender: FDA-Public Use
  Company Number: BR-BAYER-200916681LA

PATIENT
  Age: 26 Year
  Sex: Female

DRUGS (5)
  1. BETAFERON [Suspect]
     Indication: MULTIPLE SCLEROSIS
     Dosage: TOTAL DAILY DOSE: 8 MIU
     Route: 058
     Dates: start: 20090101, end: 20090601
  2. BETAFERON [Suspect]
     Dosage: TOTAL DAILY DOSE: 8 MIU
     Route: 058
     Dates: start: 20090601
  3. CORTITOP [Concomitant]
     Indication: FUNGAL SKIN INFECTION
     Route: 065
     Dates: start: 20090530
  4. CONTRACEPTIVES NOS [Concomitant]
     Indication: DRUG USE FOR UNKNOWN INDICATION
     Route: 065
  5. NEO FLUOXETIN [Concomitant]
     Indication: DEPRESSION
     Route: 048

REACTIONS (21)
  - CONSTIPATION [None]
  - DEPRESSION [None]
  - FALL [None]
  - FATIGUE [None]
  - HEADACHE [None]
  - HEAT EXHAUSTION [None]
  - INJECTION SITE DISCOLOURATION [None]
  - INJECTION SITE ERYTHEMA [None]
  - INJECTION SITE HAEMATOMA [None]
  - INJECTION SITE HAEMORRHAGE [None]
  - INJECTION SITE PAIN [None]
  - LOSS OF LIBIDO [None]
  - MENSTRUATION IRREGULAR [None]
  - MULTIPLE SCLEROSIS [None]
  - MUSCULAR WEAKNESS [None]
  - NASOPHARYNGITIS [None]
  - NERVOUSNESS [None]
  - PRURITUS GENERALISED [None]
  - PYREXIA [None]
  - SYNCOPE [None]
  - TREMOR [None]
